FAERS Safety Report 10936121 (Version 1)
Quarter: 2015Q1

REPORT INFORMATION
  Report Type: Spontaneous
  Country: AU (occurrence: AU)
  Receive Date: 20150320
  Receipt Date: 20150320
  Transmission Date: 20150721
  Serious: Yes (Hospitalization, Other)
  Sender: FDA-Public Use
  Company Number: AU-009507513-1503AUS005993

PATIENT
  Sex: Male

DRUGS (6)
  1. ZOLADEX [Suspect]
     Active Substance: GOSERELIN ACETATE
     Dosage: UNK
     Route: 058
     Dates: start: 20141003
  2. GLICLAZIDE [Suspect]
     Active Substance: GLICLAZIDE
  3. COSUDEX [Suspect]
     Active Substance: BICALUTAMIDE
     Dosage: UNK
     Route: 048
     Dates: start: 20141003
  4. EZETROL [Suspect]
     Active Substance: EZETIMIBE
     Dosage: UNK
     Route: 048
  5. PAROXETINE HYDROCHLORIDE. [Suspect]
     Active Substance: PAROXETINE HYDROCHLORIDE
  6. TARGIN [Suspect]
     Active Substance: NALOXONE HYDROCHLORIDE\OXYCODONE HYDROCHLORIDE

REACTIONS (6)
  - Back injury [Unknown]
  - Cerebral haemorrhage [Unknown]
  - Fall [Unknown]
  - Decreased appetite [Unknown]
  - Traumatic haemorrhage [Unknown]
  - Weight decreased [Unknown]
